FAERS Safety Report 10638781 (Version 1)
Quarter: 2014Q4

REPORT INFORMATION
  Report Type: Spontaneous
  Country: US (occurrence: None)
  Receive Date: 20141204
  Receipt Date: 20141204
  Transmission Date: 20150529
  Serious: Yes (Hospitalization, Other)
  Sender: FDA-Public Use
  Company Number: None

PATIENT
  Age: 27 Year
  Sex: Male
  Weight: 75 kg

DRUGS (2)
  1. TOTAL PARENTERAL NUTRITION [Concomitant]
     Active Substance: UNSPECIFIED INGREDIENT
  2. GATTEX [Suspect]
     Active Substance: TEDUGLUTIDE\WATER
     Indication: PARENTERAL NUTRITION
     Route: 058
     Dates: start: 20130617, end: 20140630

REACTIONS (3)
  - Gastrointestinal disorder [None]
  - Pancreatitis [None]
  - Hypertrophy [None]

NARRATIVE: CASE EVENT DATE: 20140630
